FAERS Safety Report 17913456 (Version 1)
Quarter: 2020Q2

REPORT INFORMATION
  Report Type: Spontaneous
  Country: US (occurrence: US)
  Receive Date: 20200618
  Receipt Date: 20200618
  Transmission Date: 20200714
  Serious: No
  Sender: FDA-Public Use
  Company Number: US-THERAPEUTICSMD-2020TMD02222

PATIENT
  Age: 62 Year
  Sex: Female
  Weight: 77.1 kg

DRUGS (4)
  1. IMVEXXY [Suspect]
     Active Substance: ESTRADIOL
     Dosage: 10 ?G, 2X/WEEK AT NIGHT
     Route: 067
     Dates: start: 20190417, end: 20200424
  2. PROGESTERONE. [Concomitant]
     Active Substance: PROGESTERONE
     Dosage: 12 DAYS ON AND 16 DAYS OFF
  3. IMVEXXY [Suspect]
     Active Substance: ESTRADIOL
     Indication: ATROPHIC VULVOVAGINITIS
     Dosage: 10 ?G, 2X/WEEK AT NIGHT
     Route: 067
     Dates: start: 20200509
  4. ESTROGEN WEEKLY PATCH [Concomitant]
     Dosage: UNK, 1X/WEEK

REACTIONS (5)
  - Muscle spasms [Recovered/Resolved]
  - Vaginal haemorrhage [Recovered/Resolved]
  - Back disorder [Not Recovered/Not Resolved]
  - Product dose omission [Recovered/Resolved]
  - Off label use [Not Recovered/Not Resolved]

NARRATIVE: CASE EVENT DATE: 20190417
